FAERS Safety Report 24965545 (Version 1)
Quarter: 2025Q1

REPORT INFORMATION
  Report Type: Spontaneous
  Country: US (occurrence: None)
  Receive Date: 20250213
  Receipt Date: 20250213
  Transmission Date: 20250409
  Serious: Yes (Other)
  Sender: FDA-CTU
  Company Number: None

PATIENT
  Age: 48 Year
  Sex: Female
  Weight: 71.55 kg

DRUGS (1)
  1. ACAMPROSATE CALCIUM [Suspect]
     Active Substance: ACAMPROSATE CALCIUM
     Dosage: OTHER QUANTITY : 2 TABLET(S);?FREQUENCY : 3 TIMES A DAY;?
     Route: 048

REACTIONS (3)
  - Psychotic disorder [None]
  - Agitation [None]
  - Rash [None]

NARRATIVE: CASE EVENT DATE: 20250213
